FAERS Safety Report 24524212 (Version 1)
Quarter: 2024Q4

REPORT INFORMATION
  Report Type: Report from Study
  Country: US (occurrence: US)
  Receive Date: 20241018
  Receipt Date: 20241018
  Transmission Date: 20250114
  Serious: Yes (Hospitalization, Other)
  Sender: ALEXION PHARMACEUTICALS
  Company Number: US-AstraZeneca-CH-00715417A

PATIENT
  Weight: 87.075 kg

DRUGS (14)
  1. CALQUENCE [Suspect]
     Active Substance: ACALABRUTINIB
     Indication: B-cell lymphoma
  2. CALQUENCE [Suspect]
     Active Substance: ACALABRUTINIB
  3. CALQUENCE [Suspect]
     Active Substance: ACALABRUTINIB
  4. CALQUENCE [Suspect]
     Active Substance: ACALABRUTINIB
  5. RETACRIT [Concomitant]
     Active Substance: EPOETIN ALFA-EPBX
  6. RETACRIT [Concomitant]
     Active Substance: EPOETIN ALFA-EPBX
     Route: 065
  7. NORVASC [Concomitant]
     Active Substance: AMLODIPINE BESYLATE
  8. NORVASC [Concomitant]
     Active Substance: AMLODIPINE BESYLATE
     Route: 065
  9. FARXIGA [Concomitant]
     Active Substance: DAPAGLIFLOZIN PROPANEDIOL
     Route: 065
  10. FARXIGA [Concomitant]
     Active Substance: DAPAGLIFLOZIN PROPANEDIOL
  11. FARXIGA [Concomitant]
     Active Substance: DAPAGLIFLOZIN PROPANEDIOL
     Route: 065
  12. FARXIGA [Concomitant]
     Active Substance: DAPAGLIFLOZIN PROPANEDIOL
  13. LASIX [Concomitant]
     Active Substance: FUROSEMIDE
  14. LASIX [Concomitant]
     Active Substance: FUROSEMIDE
     Route: 065

REACTIONS (4)
  - Hypoxia [Unknown]
  - Cardiac failure acute [Unknown]
  - Pulmonary oedema [Unknown]
  - Hypertension [Unknown]
